FAERS Safety Report 19845283 (Version 1)
Quarter: 2021Q3

REPORT INFORMATION
  Report Type: Report from Study
  Country: None (occurrence: US)
  Receive Date: 20210917
  Receipt Date: 20210917
  Transmission Date: 20211014
  Serious: Yes (Other)
  Sender: FDA-Public Use
  Company Number: US-ABBVIE-21K-163-4028514-00

PATIENT
  Sex: Female

DRUGS (3)
  1. HUMIRA [Suspect]
     Active Substance: ADALIMUMAB
     Indication: PSORIATIC ARTHROPATHY
     Route: 058
     Dates: start: 20210730
  2. METHOTREXATE. [Concomitant]
     Active Substance: METHOTREXATE
     Indication: PRODUCT USED FOR UNKNOWN INDICATION
  3. TRAMADOL. [Concomitant]
     Active Substance: TRAMADOL
     Indication: PRODUCT USED FOR UNKNOWN INDICATION

REACTIONS (16)
  - Unevaluable event [Unknown]
  - Skin discolouration [Unknown]
  - Fine motor skill dysfunction [Not Recovered/Not Resolved]
  - Loss of personal independence in daily activities [Unknown]
  - Grip strength decreased [Not Recovered/Not Resolved]
  - Back disorder [Unknown]
  - Pain in extremity [Unknown]
  - Dysstasia [Unknown]
  - Joint range of motion decreased [Not Recovered/Not Resolved]
  - Psoriatic arthropathy [Not Recovered/Not Resolved]
  - Nodule [Unknown]
  - Musculoskeletal stiffness [Unknown]
  - Peripheral swelling [Unknown]
  - Vein rupture [Unknown]
  - Mobility decreased [Not Recovered/Not Resolved]
  - Sitting disability [Unknown]

NARRATIVE: CASE EVENT DATE: 2021
